FAERS Safety Report 17381218 (Version 1)
Quarter: 2020Q1

REPORT INFORMATION
  Report Type: Spontaneous
  Country: US (occurrence: US)
  Receive Date: 20200206
  Receipt Date: 20200206
  Transmission Date: 20200409
  Serious: Yes (Life-Threatening, Other)
  Sender: FDA-Public Use
  Company Number: None

PATIENT
  Age: 0 Day
  Sex: Male
  Weight: 1.08 kg

DRUGS (1)
  1. INFASURF [Suspect]
     Active Substance: CALFACTANT
     Indication: NEONATAL RESPIRATORY DISTRESS SYNDROME
     Dosage: ?          OTHER FREQUENCY:ONCE;?
     Route: 007
     Dates: start: 20200204, end: 20200204

REACTIONS (3)
  - Hypoventilation [None]
  - Endotracheal intubation complication [None]
  - Face injury [None]

NARRATIVE: CASE EVENT DATE: 20200204
